FAERS Safety Report 20456186 (Version 1)
Quarter: 2022Q1

REPORT INFORMATION
  Report Type: Spontaneous
  Country: US (occurrence: None)
  Receive Date: 20220210
  Receipt Date: 20220210
  Transmission Date: 20220423
  Serious: Yes (Other)
  Sender: FDA-Public Use
  Company Number: None

PATIENT
  Age: 29 Year
  Sex: Female

DRUGS (1)
  1. ZAFEMY [Suspect]
     Active Substance: ETHINYL ESTRADIOL\NORELGESTROMIN

REACTIONS (5)
  - Product substitution issue [None]
  - Drug ineffective [None]
  - Pregnancy with contraceptive patch [None]
  - Device adhesion issue [None]
  - Product complaint [None]

NARRATIVE: CASE EVENT DATE: 20220209
